FAERS Safety Report 12422997 (Version 2)
Quarter: 2016Q3

REPORT INFORMATION
  Report Type: Spontaneous
  Country: US (occurrence: US)
  Receive Date: 20160601
  Receipt Date: 20160802
  Transmission Date: 20161109
  Serious: No
  Sender: FDA-Public Use
  Company Number: US-PFIZER INC-2016264351

PATIENT
  Age: 42 Year
  Sex: Female
  Weight: 81.65 kg

DRUGS (5)
  1. CHANTIX [Suspect]
     Active Substance: VARENICLINE TARTRATE
     Dosage: UNK
     Route: 048
  2. DALIRESP [Concomitant]
     Active Substance: ROFLUMILAST
     Indication: INFLAMMATION
  3. CHANTIX [Suspect]
     Active Substance: VARENICLINE TARTRATE
     Indication: SMOKING CESSATION THERAPY
     Dosage: ONE TABLET IN THE MORNING AND ONE TABLET AT NIGHT BY MOUTH
     Route: 048
  4. DALIRESP [Concomitant]
     Active Substance: ROFLUMILAST
     Indication: DYSPNOEA
     Dosage: 500MG ONE TABLET BY MOUTH ONCE A DAY
     Route: 048
  5. SYMBICORT [Concomitant]
     Active Substance: BUDESONIDE\FORMOTEROL FUMARATE DIHYDRATE
     Indication: INFLAMMATION
     Dosage: [BUDESONIDE 160MG/][FORMOTEROL FUMARATE 4.5MG] TWO PUFFS IN THE MORNING, AND TWO PUFFS AT NIGHT
     Route: 048

REACTIONS (7)
  - Fatigue [Recovered/Resolved]
  - Somnolence [Recovered/Resolved]
  - General physical health deterioration [Unknown]
  - Chronic obstructive pulmonary disease [Not Recovered/Not Resolved]
  - Abdominal discomfort [Unknown]
  - Anxiety [Not Recovered/Not Resolved]
  - Paranoia [Unknown]
